FAERS Safety Report 5104557-7 (Version None)
Quarter: 2006Q3

REPORT INFORMATION
  Report Type: 
  Country: None (occurrence: None)
  Receive Date: 20060914
  Receipt Date: 20060823
  Transmission Date: 20061208
  Serious: Yes (Other)
  Sender: FDA-Public Use
  Company Number: PHEH2006US10905

PATIENT
  Age: 52 Year
  Sex: Female

DRUGS (1)
  1. FEMARA [Suspect]
     Dates: end: 20060821

REACTIONS (5)
  - AFFECT LABILITY [None]
  - NIGHTMARE [None]
  - PAIN IN EXTREMITY [None]
  - SUICIDAL IDEATION [None]
  - VAGINAL HAEMORRHAGE [None]
